FAERS Safety Report 16228995 (Version 1)
Quarter: 2019Q2

REPORT INFORMATION
  Report Type: Spontaneous
  Country: US (occurrence: US)
  Receive Date: 20190319
  Receipt Date: 20190319
  Transmission Date: 20190711
  Serious: No
  Sender: FDA-Public Use
  Company Number: None

PATIENT
  Age: 85 Year
  Sex: Female
  Weight: 47.17 kg

DRUGS (1)
  1. LEVOFLOXACIN. [Suspect]
     Active Substance: LEVOFLOXACIN
     Indication: INFECTION PROPHYLAXIS
     Dosage: ?          QUANTITY:250-750;OTHER FREQUENCY:7-12;?
     Route: 048
     Dates: start: 20171121, end: 20180105

REACTIONS (5)
  - Renal mass [None]
  - Renal impairment [None]
  - Cerebral disorder [None]
  - Functional gastrointestinal disorder [None]
  - General physical health deterioration [None]

NARRATIVE: CASE EVENT DATE: 20171231
